FAERS Safety Report 10839227 (Version 1)
Quarter: 2015Q1

REPORT INFORMATION
  Report Type: Spontaneous
  Country: IT (occurrence: None)
  Receive Date: 20150218
  Receipt Date: 20150218
  Transmission Date: 20150721
  Serious: Yes (Other)
  Sender: FDA-Public Use
  Company Number: IT-ALKEM-000849

PATIENT
  Age: 05 Year
  Sex: Female

DRUGS (2)
  1. TACROLIMUS (TACROLIMUS) [Suspect]
     Active Substance: TACROLIMUS
     Indication: GRAFT VERSUS HOST DISEASE
  2. MYCOPHENOLATE MOFETIL. [Suspect]
     Active Substance: MYCOPHENOLATE MOFETIL
     Indication: GRAFT VERSUS HOST DISEASE

REACTIONS (9)
  - Drug intolerance [None]
  - Weight decreased [None]
  - Surgical procedure repeated [None]
  - Hypertension [None]
  - Bone marrow transplant [None]
  - Nausea [None]
  - Bone marrow toxicity [None]
  - Gastrointestinal toxicity [None]
  - Vomiting [None]
